FAERS Safety Report 8827765 (Version 1)
Quarter: 2012Q4

REPORT INFORMATION
  Report Type: 
  Country: US (occurrence: US)
  Receive Date: 20121005
  Receipt Date: 20121005
  Transmission Date: 20130627
  Serious: Yes (Death, Other)
  Sender: FDA-Public Use
  Company Number: US-ROCHE-1128738

PATIENT
  Age: 62 Year
  Sex: Female

DRUGS (3)
  1. RITUXAN [Suspect]
     Indication: RHEUMATOID ARTHRITIS
     Route: 042
     Dates: start: 20100527, end: 20100616
  2. RITUXAN [Suspect]
     Indication: ARTERITIS
  3. RITUXAN [Suspect]
     Indication: OFF LABEL USE

REACTIONS (3)
  - Respiratory failure [Fatal]
  - Renal failure [Fatal]
  - Hypertensive emergency [Unknown]
